FAERS Safety Report 15804421 (Version 2)
Quarter: 2019Q1

REPORT INFORMATION
  Report Type: Spontaneous
  Country: BR (occurrence: BR)
  Receive Date: 20190109
  Receipt Date: 20190111
  Transmission Date: 20190417
  Serious: Yes (Other)
  Sender: FDA-Public Use
  Company Number: BR-PFIZER INC-2019009369

PATIENT
  Age: 81 Year
  Sex: Female

DRUGS (2)
  1. LORAX//LORAZEPAM [Suspect]
     Active Substance: LORAZEPAM
     Indication: ANXIETY
  2. LORAX//LORAZEPAM [Suspect]
     Active Substance: LORAZEPAM
     Indication: SLEEP DISORDER
     Dosage: UNK
     Dates: start: 1989

REACTIONS (2)
  - Brain neoplasm [Unknown]
  - Product use issue [Unknown]
